FAERS Safety Report 23322524 (Version 1)
Quarter: 2023Q4

REPORT INFORMATION
  Report Type: Spontaneous
  Country: US (occurrence: US)
  Receive Date: 20231220
  Receipt Date: 20231220
  Transmission Date: 20240109
  Serious: No
  Sender: FDA-Public Use
  Company Number: US-ELI_LILLY_AND_COMPANY-US202312010092

PATIENT
  Age: 81 Year
  Sex: Female

DRUGS (7)
  1. HUMALOG [Suspect]
     Active Substance: INSULIN LISPRO
     Indication: Type 2 diabetes mellitus
     Dosage: 5 UNITS WITH A SMALL MEAL, 7 WITH A REGULAR MEAL, AND 8 UNITS WITH A LARGE MEAL
     Route: 065
     Dates: start: 2020
  2. HUMALOG [Suspect]
     Active Substance: INSULIN LISPRO
     Indication: Type 2 diabetes mellitus
     Dosage: 5 UNITS WITH A SMALL MEAL, 7 WITH A REGULAR MEAL, AND 8 UNITS WITH A LARGE MEAL
     Route: 065
     Dates: start: 2020
  3. HUMALOG [Suspect]
     Active Substance: INSULIN LISPRO
     Indication: Type 2 diabetes mellitus
     Dosage: 5 UNITS WITH A SMALL MEAL, 7 WITH A REGULAR MEAL, AND 8 UNITS WITH A LARGE MEAL
     Route: 065
     Dates: start: 2020
  4. HUMALOG [Suspect]
     Active Substance: INSULIN LISPRO
     Dosage: 5 UNITS WITH A SMALL MEAL, 7 WITH A REGULAR MEAL, AND 8 UNITS WITH A LARGE MEAL
     Route: 065
     Dates: start: 2020
  5. HUMALOG [Suspect]
     Active Substance: INSULIN LISPRO
     Dosage: 5 UNITS WITH A SMALL MEAL, 7 WITH A REGULAR MEAL, AND 8 UNITS WITH A LARGE MEAL
     Route: 065
     Dates: start: 2020
  6. HUMALOG [Suspect]
     Active Substance: INSULIN LISPRO
     Dosage: 5 UNITS WITH A SMALL MEAL, 7 WITH A REGULAR MEAL, AND 8 UNITS WITH A LARGE MEAL
     Route: 065
     Dates: start: 2020
  7. TRESIBA [Concomitant]
     Active Substance: INSULIN DEGLUDEC
     Indication: Product used for unknown indication

REACTIONS (2)
  - Blood glucose increased [Unknown]
  - Blood glucose decreased [Unknown]

NARRATIVE: CASE EVENT DATE: 20220601
